FAERS Safety Report 9416370 (Version 1)
Quarter: 2013Q3

REPORT INFORMATION
  Report Type: Spontaneous
  Country: US (occurrence: US)
  Receive Date: 20130724
  Receipt Date: 20130724
  Transmission Date: 20140515
  Serious: No
  Sender: FDA-Public Use
  Company Number: US-PFIZER INC-2013212986

PATIENT
  Sex: Male

DRUGS (2)
  1. VIAGRA [Suspect]
     Dosage: 25 MG, UNK
  2. VIAGRA [Suspect]
     Dosage: 50 MG, UNK (TWO PILLS OF 25MG EACH)

REACTIONS (1)
  - Drug ineffective [Unknown]
